FAERS Safety Report 4350970-5 (Version None)
Quarter: 2004Q2

REPORT INFORMATION
  Report Type: 
  Country: None (occurrence: None)
  Receive Date: 20040427
  Receipt Date: 20031103
  Transmission Date: 20050107
  Serious: Yes (Life-Threatening, Hospitalization, Other)
  Sender: FDA-Public Use
  Company Number: 176478

PATIENT
  Age: 47 Year
  Sex: Female

DRUGS (1)
  1. AVONEX [Suspect]
     Indication: MULTIPLE SCLEROSIS
     Dosage: 30 MCG QW IM
     Route: 030
     Dates: start: 20001201

REACTIONS (5)
  - BACK DISORDER [None]
  - CARCINOMA [None]
  - INTRACRANIAL ANEURYSM [None]
  - MENTAL IMPAIRMENT [None]
  - STRESS SYMPTOMS [None]
